FAERS Safety Report 16729922 (Version 1)
Quarter: 2019Q3

REPORT INFORMATION
  Report Type: Spontaneous
  Country: US (occurrence: US)
  Receive Date: 20190717
  Receipt Date: 20190717
  Transmission Date: 20191005
  Serious: No
  Sender: FDA-Public Use
  Company Number: None

PATIENT

DRUGS (1)
  1. HEPARIN SOD SOLUTION 25,000 UNITS/ 250ML HEPARIN SODIUM 25000 ... [Suspect]
     Active Substance: HEPARIN SODIUM
     Dosage: ?          OTHER STRENGTH:25000 UNITS/250ML;OTHER ROUTE:INJECTION?

REACTIONS (1)
  - Product packaging confusion [None]
